FAERS Safety Report 20107940 (Version 1)
Quarter: 2021Q4

REPORT INFORMATION
  Report Type: Spontaneous
  Country: US (occurrence: US)
  Receive Date: 20211124
  Receipt Date: 20211124
  Transmission Date: 20220303
  Serious: Yes (Hospitalization, Other)
  Sender: FDA-Public Use
  Company Number: US-BEH-2021138372

PATIENT
  Sex: Female

DRUGS (6)
  1. HIZENTRA [Suspect]
     Active Substance: HUMAN IMMUNOGLOBULIN G
     Dosage: UNK
     Route: 042
  2. DUPILUMAB [Suspect]
     Active Substance: DUPILUMAB
     Indication: Bacterial infection
     Dosage: 300 MILLIGRAM, QOW
     Route: 058
     Dates: start: 20100410
  3. DUPILUMAB [Suspect]
     Active Substance: DUPILUMAB
     Indication: Immunodeficiency common variable
  4. DUPILUMAB [Suspect]
     Active Substance: DUPILUMAB
     Indication: Pseudomonas infection
  5. DUPILUMAB [Suspect]
     Active Substance: DUPILUMAB
     Indication: Fasciolopsiasis
  6. DUPILUMAB [Suspect]
     Active Substance: DUPILUMAB
     Indication: Asthma

REACTIONS (2)
  - Injection site pruritus [Unknown]
  - Incorrect route of product administration [Unknown]
